FAERS Safety Report 13908459 (Version 1)
Quarter: 2017Q3

REPORT INFORMATION
  Report Type: Report from Study
  Country: IT (occurrence: IT)
  Receive Date: 20170826
  Receipt Date: 20170826
  Transmission Date: 20171127
  Serious: Yes (Other)
  Sender: FDA-Public Use
  Company Number: IT-MYLANLABS-2017M1053578

PATIENT

DRUGS (3)
  1. RANITIDINE. [Concomitant]
     Active Substance: RANITIDINE
     Indication: ABDOMINAL PAIN UPPER
     Dosage: UNK
     Route: 048
  2. GAVISCON [Concomitant]
     Active Substance: ALUMINUM HYDROXIDE\MAGNESIUM CARBONATE
     Indication: ABDOMINAL PAIN UPPER
     Route: 048
  3. KETOPROFEN. [Suspect]
     Active Substance: KETOPROFEN
     Indication: HEADACHE
     Dosage: UNK
     Route: 048
     Dates: start: 20170624, end: 20170626

REACTIONS (4)
  - Nausea [Recovering/Resolving]
  - Pain [Recovering/Resolving]
  - Drug abuse [Recovering/Resolving]
  - Abdominal pain upper [Recovering/Resolving]

NARRATIVE: CASE EVENT DATE: 20170627
